FAERS Safety Report 9854656 (Version 1)
Quarter: 2014Q1

REPORT INFORMATION
  Report Type: Spontaneous
  Country: US (occurrence: US)
  Receive Date: 20140130
  Receipt Date: 20140130
  Transmission Date: 20141002
  Serious: No
  Sender: FDA-Public Use
  Company Number: US-BIOGENIDEC-2014BI008141

PATIENT
  Sex: Male

DRUGS (20)
  1. TECFIDERA [Suspect]
     Indication: MULTIPLE SCLEROSIS
     Route: 048
     Dates: start: 20140106
  2. ACTOPLUS MET [Concomitant]
  3. ASPIRIN [Concomitant]
  4. BACLOFEN [Concomitant]
  5. CALCIUM [Concomitant]
  6. CITALOPRAM HYDROBROMIDE [Concomitant]
  7. CRESTOR [Concomitant]
  8. CYCLOBENZAPRINE COMFORT PAC [Concomitant]
  9. DILTIAZEM HCL ER BEADS [Concomitant]
  10. ERGOCALCIFEROL [Concomitant]
  11. GABAPENTIN [Concomitant]
  12. LORATADINE [Concomitant]
  13. MELOXICAM [Concomitant]
  14. NIASPAN [Concomitant]
  15. OMEPRAZOLE [Concomitant]
  16. SIMVASTATIN [Concomitant]
  17. TRAMADOL HCL [Concomitant]
  18. VARDENAFIL HCL [Concomitant]
  19. VITAMIN D [Concomitant]
  20. ZOLPIDEM TARTRATE [Concomitant]

REACTIONS (1)
  - Sensation of heaviness [Unknown]
